FAERS Safety Report 9323804 (Version 1)
Quarter: 2013Q2

REPORT INFORMATION
  Report Type: Spontaneous
  Country: IL (occurrence: IL)
  Receive Date: 20130603
  Receipt Date: 20130603
  Transmission Date: 20140414
  Serious: Yes (Other)
  Sender: FDA-Public Use
  Company Number: IL-JNJFOC-20121010141

PATIENT
  Sex: Female

DRUGS (1)
  1. EVRA [Suspect]
     Indication: PRODUCT USED FOR UNKNOWN INDICATION
     Route: 062
     Dates: end: 2013

REACTIONS (6)
  - Secretion discharge [Not Recovered/Not Resolved]
  - Fungal infection [Recovered/Resolved]
  - Musculoskeletal pain [Recovered/Resolved]
  - Musculoskeletal pain [Recovered/Resolved]
  - Groin pain [Recovered/Resolved]
  - Drug prescribing error [Unknown]
